FAERS Safety Report 5367536-0 (Version None)
Quarter: 2007Q2

REPORT INFORMATION
  Report Type: 
  Country: None (occurrence: None)
  Receive Date: 20070620
  Receipt Date: 20070620
  Transmission Date: 20071010
  Serious: Yes (Life-Threatening, Hospitalization, Other)
  Sender: FDA-Public Use
  Company Number: None

PATIENT
  Age: 46 Year
  Sex: Male
  Weight: 113.3993 kg

DRUGS (2)
  1. NEUPOGEN [Suspect]
     Indication: HEPATITIS C
     Dosage: INJECT 300 MCG ONCE WEEKLY 677316
     Dates: start: 20060711
  2. NEUPOGEN [Suspect]
     Indication: WHITE BLOOD CELL COUNT DECREASED
     Dosage: INJECT 300 MCG ONCE WEEKLY 677316
     Dates: start: 20060711

REACTIONS (3)
  - HAEMORRHAGE [None]
  - OESOPHAGEAL RUPTURE [None]
  - VOMITING [None]
